FAERS Safety Report 6982652-5 (Version None)
Quarter: 2010Q3

REPORT INFORMATION
  Report Type: 
  Country: None (occurrence: None)
  Receive Date: 20100914
  Receipt Date: 20100317
  Transmission Date: 20110219
  Serious: Yes (Other)
  Sender: FDA-Public Use
  Company Number: US-PFIZER INC-2010014440

PATIENT
  Sex: Female
  Weight: 93.44 kg

DRUGS (4)
  1. LYRICA [Suspect]
     Indication: DIABETIC NEUROPATHY
     Dosage: 300 MG, DAILY
     Dates: start: 20090626, end: 20090823
  2. NOVOLOG [Concomitant]
     Dosage: UNK
  3. PROVENTIL GENTLEHALER [Concomitant]
     Dosage: 90 UG, UNK
  4. MOBIC [Concomitant]
     Dosage: 15 MG, UNK

REACTIONS (1)
  - VISION BLURRED [None]
